FAERS Safety Report 16459961 (Version 1)
Quarter: 2019Q2

REPORT INFORMATION
  Report Type: Spontaneous
  Country: US (occurrence: US)
  Receive Date: 20190620
  Receipt Date: 20190620
  Transmission Date: 20190711
  Serious: No
  Sender: FDA-Public Use
  Company Number: US-ASTRAZENECA-2019SE78583

PATIENT
  Age: 60 Year
  Sex: Male

DRUGS (2)
  1. BRILINTA [Suspect]
     Active Substance: TICAGRELOR
     Indication: MYOCARDIAL INFARCTION
     Dosage: 2 DOSES OF 90 MG BRILINTA ON SAT AND ONE DOSE OF BRILINTA 90 MG SUNDAY90.0MG UNKNOWN
     Route: 048
  2. BRILINTA [Suspect]
     Active Substance: TICAGRELOR
     Indication: STENT PLACEMENT
     Dosage: 2 DOSES OF 90 MG BRILINTA ON SAT AND ONE DOSE OF BRILINTA 90 MG SUNDAY90.0MG UNKNOWN
     Route: 048

REACTIONS (2)
  - Coronary artery disease [Unknown]
  - Cardiac disorder [Not Recovered/Not Resolved]
